FAERS Safety Report 25089802 (Version 1)
Quarter: 2025Q1

REPORT INFORMATION
  Report Type: Spontaneous
  Country: AU (occurrence: AU)
  Receive Date: 20250318
  Receipt Date: 20250318
  Transmission Date: 20250409
  Serious: Yes (Hospitalization)
  Sender: SEPTODONT
  Company Number: AU-SEPTODONT-2025019473

PATIENT
  Age: 41 Year
  Sex: Female
  Weight: 65 kg

DRUGS (4)
  1. ARTICAINE HYDROCHLORIDE\EPINEPHRINE BITARTRATE [Suspect]
     Active Substance: ARTICAINE HYDROCHLORIDE\EPINEPHRINE BITARTRATE
     Indication: Dental local anaesthesia
     Route: 004
     Dates: start: 20250203
  2. EPINEPHRINE BITARTRATE\LIDOCAINE HYDROCHLORIDE [Suspect]
     Active Substance: EPINEPHRINE BITARTRATE\LIDOCAINE HYDROCHLORIDE
     Indication: Dental local anaesthesia
     Route: 004
     Dates: start: 20250203
  3. Septodont 30G 0.30 x 25 mm [Concomitant]
     Dates: start: 20250203
  4. Septodont 27G 0.40 x 35 mm [Concomitant]
     Dates: start: 20250203

REACTIONS (4)
  - Cold sweat [Recovered/Resolved]
  - Chest pain [Recovered/Resolved]
  - Renal pain [Unknown]
  - Fatigue [Unknown]

NARRATIVE: CASE EVENT DATE: 20250201
